FAERS Safety Report 4691478-7 (Version None)
Quarter: 2005Q2

REPORT INFORMATION
  Report Type: 
  Country: None (occurrence: None)
  Receive Date: 20050614
  Receipt Date: 20050328
  Transmission Date: 20051028
  Serious: No
  Sender: FDA-Public Use
  Company Number: 23100217

PATIENT
  Age: 51 Year
  Sex: Female
  Weight: 72 kg

DRUGS (3)
  1. NOVASTAN [Suspect]
     Indication: ANTICOAGULANT THERAPY
     Dosage: 8 MG CONT IV
     Route: 042
     Dates: start: 20050323, end: 20050323
  2. NOVASTAN [Suspect]
     Indication: DEEP VEIN THROMBOSIS
     Dosage: 8 MG CONT IV
     Route: 042
     Dates: start: 20050323, end: 20050323
  3. REFLUDAN [Concomitant]

REACTIONS (1)
  - HYPERSENSITIVITY [None]
